FAERS Safety Report 23467110 (Version 2)
Quarter: 2024Q1

REPORT INFORMATION
  Report Type: Report from Study
  Country: MX (occurrence: MX)
  Receive Date: 20240201
  Receipt Date: 20240205
  Transmission Date: 20240410
  Serious: Yes (Hospitalization)
  Sender: FDA-Public Use
  Company Number: MX-AstraZeneca-2024A021769

PATIENT
  Age: 4 Month
  Sex: Male
  Weight: 3.2 kg

DRUGS (3)
  1. SYNAGIS [Suspect]
     Active Substance: PALIVIZUMAB
     Indication: Antiviral prophylaxis
     Dosage: MONTHLY
     Route: 030
     Dates: start: 20231013, end: 20231013
  2. SYNAGIS [Suspect]
     Active Substance: PALIVIZUMAB
     Dosage: 50MG/0.5ML ?MONTHLY
     Route: 030
     Dates: start: 20231124, end: 20231124
  3. SYNAGIS [Suspect]
     Active Substance: PALIVIZUMAB
     Dosage: 50MG/0.5ML ?MONTHLY
     Route: 030
     Dates: start: 20240126, end: 20240126

REACTIONS (3)
  - Dehydration [Not Recovered/Not Resolved]
  - Secretion discharge [Not Recovered/Not Resolved]
  - General physical health deterioration [Not Recovered/Not Resolved]
